FAERS Safety Report 8985270 (Version 5)
Quarter: 2013Q2

REPORT INFORMATION
  Report Type: Spontaneous
  Country: JP (occurrence: JP)
  Receive Date: 20121226
  Receipt Date: 20130618
  Transmission Date: 20140414
  Serious: Yes (Life-Threatening)
  Sender: FDA-Public Use
  Company Number: JP-009507513-1212JPN009309

PATIENT
  Age: 62 Year
  Sex: Female

DRUGS (6)
  1. TEMODAL [Suspect]
     Indication: GLIOMATOSIS CEREBRI
     Dosage: 150 MG/M2, QD
     Route: 048
     Dates: start: 20090125
  2. TEMODAL [Suspect]
     Dosage: 200 MG/M2, QD, FIVE COOL
     Route: 048
     Dates: end: 20090628
  3. TEMODAL [Suspect]
     Dosage: 75 MG/M2, QD
     Route: 048
     Dates: start: 20090722, end: 20090901
  4. RINDERON (BETAMETHASONE) [Suspect]
     Dosage: 4 MG, BID POR
     Route: 048
     Dates: start: 20090715
  5. PREDNISOLONE [Concomitant]
     Dosage: DIVIDED DOSE FREQUENCY UNKNOWN
  6. SULFAMETHOXAZOLE (+) TRIMETHOPRIM [Concomitant]
     Indication: ANTIFUNGAL PROPHYLAXIS
     Dosage: DIVIDED DOSE FREQUENCY UNKNOWN

REACTIONS (2)
  - Pneumonia cytomegaloviral [Recovered/Resolved]
  - Lymphopenia [Recovered/Resolved]
